FAERS Safety Report 8179335-5 (Version None)
Quarter: 2012Q1

REPORT INFORMATION
  Report Type: 
  Country: None (occurrence: None)
  Receive Date: 20120302
  Receipt Date: 20120221
  Transmission Date: 20120608
  Serious: Yes (Other)
  Sender: FDA-Public Use
  Company Number: US-BAYER-2012-017377

PATIENT
  Age: 28 Year
  Sex: Female

DRUGS (3)
  1. DROSPIRENONE AND ETHINYL ESTRADIOL [Suspect]
     Dosage: UNK
     Dates: start: 20091101, end: 20100101
  2. YAZ [Suspect]
     Dosage: UNK
     Dates: start: 20091101, end: 20100101
  3. YASMIN [Suspect]
     Dosage: UNK
     Dates: start: 20091101, end: 20100101

REACTIONS (1)
  - CEREBROVASCULAR ACCIDENT [None]
